FAERS Safety Report 9786820 (Version 3)
Quarter: 2014Q2

REPORT INFORMATION
  Report Type: Spontaneous
  Country: IT (occurrence: IT)
  Receive Date: 20131227
  Receipt Date: 20140502
  Transmission Date: 20141212
  Serious: Yes (Life-Threatening)
  Sender: FDA-Public Use
  Company Number: IT-ABBVIE-13P-083-1183602-00

PATIENT
  Age: 38 Year
  Sex: Male

DRUGS (8)
  1. DEPAKIN [Suspect]
     Indication: DEPRESSION
     Route: 048
     Dates: start: 20130311, end: 20130903
  2. TRANQUIRIT [Suspect]
     Indication: DEPRESSION
     Dosage: SOLUTION
     Route: 048
     Dates: start: 20130311, end: 20130903
  3. PALIPERIDONE [Suspect]
     Indication: DEPRESSION
     Dosage: EXTENDED RELEASE
     Route: 048
     Dates: start: 20130311, end: 20130903
  4. VENLAFAXINE [Suspect]
     Indication: DEPRESSION
     Route: 048
     Dates: start: 20130311, end: 20130903
  5. AKINETON [Suspect]
     Indication: DEPRESSION
     Dosage: EXTENDED RELEASE
     Route: 048
     Dates: start: 20130311, end: 20130903
  6. CIPRALEX [Suspect]
     Indication: DEPRESSION
     Route: 048
     Dates: start: 20130311, end: 20130903
  7. LORAZEPAM [Concomitant]
     Indication: PRODUCT USED FOR UNKNOWN INDICATION
     Dates: start: 20130311, end: 20130903
  8. ALCOHOL [Concomitant]
     Indication: PRODUCT USED FOR UNKNOWN INDICATION

REACTIONS (2)
  - Drug interaction [Recovered/Resolved]
  - Coma [Recovered/Resolved]
